FAERS Safety Report 4971985-X (Version None)
Quarter: 2006Q2

REPORT INFORMATION
  Report Type: 
  Country: None (occurrence: None)
  Receive Date: 20060413
  Receipt Date: 20051005
  Transmission Date: 20061013
  Serious: Yes (Hospitalization)
  Sender: FDA-Public Use
  Company Number: US-MERCK-0510USA04151

PATIENT
  Age: 50 Year
  Sex: Male
  Weight: 82 kg

DRUGS (3)
  1. VIOXX [Suspect]
     Indication: PAIN
     Route: 048
     Dates: end: 20040401
  2. VITAMINS (UNSPECIFIED) [Concomitant]
     Route: 065
  3. [THERAPY UNSPECIFIED] [Concomitant]
     Indication: BLOOD CHOLESTEROL
     Route: 065

REACTIONS (9)
  - ACCELERATED HYPERTENSION [None]
  - DEEP VEIN THROMBOSIS [None]
  - DERMATITIS CONTACT [None]
  - DYSPNOEA [None]
  - HEADACHE [None]
  - HEPATITIS [None]
  - MUSCLE HAEMORRHAGE [None]
  - PULMONARY EMBOLISM [None]
  - VERTIGO POSITIONAL [None]
